FAERS Safety Report 25286413 (Version 2)
Quarter: 2025Q2

REPORT INFORMATION
  Report Type: Spontaneous
  Country: US (occurrence: US)
  Receive Date: 20250509
  Receipt Date: 20250529
  Transmission Date: 20250717
  Serious: Yes (Other)
  Sender: NOVO NORDISK
  Company Number: US-NOVOPROD-1423436

PATIENT
  Age: 66 Year
  Sex: Female

DRUGS (3)
  1. OZEMPIC [Suspect]
     Active Substance: SEMAGLUTIDE
     Indication: Insulin resistance
     Dosage: 0.5 MG, QW
     Route: 058
     Dates: start: 202410
  2. OZEMPIC [Suspect]
     Active Substance: SEMAGLUTIDE
     Indication: Sleep apnoea syndrome
  3. OZEMPIC [Suspect]
     Active Substance: SEMAGLUTIDE
     Indication: Hypertriglyceridaemia

REACTIONS (7)
  - Thyroid mass [Unknown]
  - Medullary thyroid cancer [Unknown]
  - Gastrointestinal disorder [Unknown]
  - Food poisoning [Unknown]
  - Feeling abnormal [Unknown]
  - Wrong technique in product usage process [Unknown]
  - Product use in unapproved indication [Unknown]

NARRATIVE: CASE EVENT DATE: 20250425
